FAERS Safety Report 5227840-3 (Version None)
Quarter: 2007Q1

REPORT INFORMATION
  Report Type: 
  Country: None (occurrence: None)
  Receive Date: 20070202
  Receipt Date: 20070122
  Transmission Date: 20070707
  Serious: Yes (Hospitalization, Other)
  Sender: FDA-Public Use
  Company Number: US-PFIZER INC-2007005884

PATIENT
  Sex: Female

DRUGS (3)
  1. CELEBREX [Suspect]
     Dates: start: 20000706, end: 20041101
  2. BEXTRA [Suspect]
     Dates: start: 20011101, end: 20041201
  3. VIOXX [Suspect]
     Route: 048
     Dates: start: 20031001, end: 20041101

REACTIONS (1)
  - TRANSIENT ISCHAEMIC ATTACK [None]
